FAERS Safety Report 9089539 (Version 3)
Quarter: 2013Q2

REPORT INFORMATION
  Report Type: Report from Study
  Country: US (occurrence: US)
  Receive Date: 20130201
  Receipt Date: 20130419
  Transmission Date: 20140414
  Serious: Yes (Other)
  Sender: FDA-Public Use
  Company Number: US-US-EMD SERONO, INC.-7190312

PATIENT
  Age: 46 Year
  Sex: Male
  Weight: 101 kg

DRUGS (6)
  1. REBIF [Suspect]
     Indication: MULTIPLE SCLEROSIS
     Route: 058
     Dates: start: 20110125, end: 201212
  2. LEVOTHYROXINE [Concomitant]
     Indication: AUTOIMMUNE THYROIDITIS
  3. TYLENOL PM                         /01088101/ [Concomitant]
     Indication: PREMEDICATION
  4. ATENOLOL [Concomitant]
     Indication: HYPERTENSION
  5. LISINOPRIL                         /00894002/ [Concomitant]
     Indication: HYPERTENSION
  6. AMLODIPINE                         /00972402/ [Concomitant]
     Indication: HYPERTENSION

REACTIONS (7)
  - Type 2 diabetes mellitus [Recovering/Resolving]
  - Abnormal loss of weight [Recovered/Resolved]
  - Stress [Unknown]
  - Overweight [Recovered/Resolved]
  - Vibratory sense increased [Unknown]
  - Visual impairment [Unknown]
  - Fatigue [Unknown]
